FAERS Safety Report 17764527 (Version 3)
Quarter: 2020Q4

REPORT INFORMATION
  Report Type: Report from Study
  Country: None (occurrence: US)
  Receive Date: 20200511
  Receipt Date: 20201209
  Transmission Date: 20210113
  Serious: Yes (Other)
  Sender: FDA-Public Use
  Company Number: US-ABBVIE-20P-163-3397965-00

PATIENT
  Age: 68 Year
  Sex: Female

DRUGS (4)
  1. IMBRUVICA [Suspect]
     Active Substance: IBRUTINIB
     Indication: CHRONIC LYMPHOCYTIC LEUKAEMIA
     Route: 048
     Dates: start: 20200118
  2. IMBRUVICA [Suspect]
     Active Substance: IBRUTINIB
     Route: 048
  3. IMBRUVICA [Suspect]
     Active Substance: IBRUTINIB
     Indication: CHRONIC LYMPHOCYTIC LEUKAEMIA
     Route: 048
  4. IMBRUVICA [Suspect]
     Active Substance: IBRUTINIB
     Route: 048

REACTIONS (5)
  - Seasonal allergy [Unknown]
  - Weight increased [Unknown]
  - Decreased activity [Unknown]
  - Knee arthroplasty [Unknown]
  - White blood cell count decreased [Unknown]

NARRATIVE: CASE EVENT DATE: 201911
